FAERS Safety Report 18165112 (Version 3)
Quarter: 2024Q4

REPORT INFORMATION
  Report Type: Spontaneous
  Country: PT (occurrence: PT)
  Receive Date: 20200818
  Receipt Date: 20241223
  Transmission Date: 20250115
  Serious: Yes (Hospitalization, Other)
  Sender: NOVARTIS
  Company Number: None

PATIENT
  Age: 53 Year
  Sex: Male

DRUGS (26)
  1. CYCLOSPORINE [Suspect]
     Active Substance: CYCLOSPORINE
     Indication: Stem cell transplant
     Dosage: 100 MG, QD (50 MG EVERY 12 HOURS PROGRESSIVELY TAPRED)
     Route: 065
     Dates: start: 200512
  2. CYCLOSPORINE [Suspect]
     Active Substance: CYCLOSPORINE
     Indication: Prophylaxis against graft versus host disease
  3. METHOTREXATE [Suspect]
     Active Substance: METHOTREXATE
     Indication: Prophylaxis against graft versus host disease
     Dosage: UNK
     Route: 065
     Dates: start: 200512
  4. METHOTREXATE [Suspect]
     Active Substance: METHOTREXATE
     Indication: Stem cell transplant
  5. PREDNISOLONE [Suspect]
     Active Substance: PREDNISOLONE
     Indication: Acute graft versus host disease
     Dosage: 30 MG, QOD (1/ 2DAYS)
     Route: 065
  6. PREDNISOLONE [Suspect]
     Active Substance: PREDNISOLONE
     Indication: Acute graft versus host disease in skin
     Dosage: 10 MG, QOD
     Route: 065
  7. PREDNISOLONE [Suspect]
     Active Substance: PREDNISOLONE
     Dosage: 142 DAYS AFTER TRANSPLANTATION THE PATIENT RECEIVED 30 MG/D.
     Route: 065
  8. BISOPROLOL FUMARATE [Suspect]
     Active Substance: BISOPROLOL FUMARATE
     Indication: Product used for unknown indication
     Dosage: 5 MG, QD
     Route: 065
  9. ENALAPRIL [Suspect]
     Active Substance: ENALAPRIL
     Indication: Product used for unknown indication
     Dosage: 20 MG, QD
     Route: 065
  10. ETOPOSIDE [Suspect]
     Active Substance: ETOPOSIDE
     Indication: Product used for unknown indication
     Dosage: UNK
     Route: 065
     Dates: start: 200512
  11. FLUDARABINE [Suspect]
     Active Substance: FLUDARABINE PHOSPHATE
     Indication: Stem cell transplant
     Dosage: UNK
     Route: 065
     Dates: start: 200512
  12. BUSULFAN [Suspect]
     Active Substance: BUSULFAN
     Indication: Stem cell transplant
     Dosage: UNK
     Route: 065
     Dates: start: 2005
  13. BUSULFAN [Suspect]
     Active Substance: BUSULFAN
     Indication: Bone marrow conditioning regimen
  14. FOLATE SODIUM [Suspect]
     Active Substance: FOLATE SODIUM
     Indication: Product used for unknown indication
     Dosage: UNK
     Route: 065
  15. IDARUBICIN [Suspect]
     Active Substance: IDARUBICIN
     Indication: Acute myeloid leukaemia
     Dosage: UNK
     Route: 065
  16. IDARUBICIN [Suspect]
     Active Substance: IDARUBICIN
     Dosage: UNK
     Route: 065
     Dates: start: 200504
  17. METHYLPREDNISOLONE [Suspect]
     Active Substance: METHYLPREDNISOLONE
     Indication: Glomerulonephritis minimal lesion
     Dosage: 1 G, TID
     Route: 042
  18. ACYCLOVIR [Suspect]
     Active Substance: ACYCLOVIR
     Indication: Product used for unknown indication
     Dosage: UNK
     Route: 065
  19. CARBOPLATIN [Suspect]
     Active Substance: CARBOPLATIN
     Indication: Product used for unknown indication
     Dosage: UNK
     Route: 065
     Dates: start: 200512
  20. CARBOPLATIN [Suspect]
     Active Substance: CARBOPLATIN
     Dosage: UNK
     Route: 065
     Dates: start: 2005
  21. CYTARABINE [Suspect]
     Active Substance: CYTARABINE
     Indication: Product used for unknown indication
     Dosage: UNK
     Route: 065
     Dates: start: 200504
  22. SULFAMETHOXAZOLE\TRIMETHOPRIM [Concomitant]
     Active Substance: SULFAMETHOXAZOLE\TRIMETHOPRIM
     Indication: Product used for unknown indication
     Dosage: 960 MG, QW3
     Route: 065
  23. COTRIMOXAZOLE [Concomitant]
     Active Substance: SULFAMETHOXAZOLE\TRIMETHOPRIM
     Indication: Product used for unknown indication
     Dosage: 960 MG, TIW
     Route: 065
  24. MIANSERIN [Concomitant]
     Active Substance: MIANSERIN
     Indication: Product used for unknown indication
     Dosage: UNK
     Route: 065
  25. Magnesio [Concomitant]
     Indication: Product used for unknown indication
     Dosage: UNK
     Route: 065
  26. FOLATE SODIUM [Concomitant]
     Active Substance: FOLATE SODIUM
     Indication: Product used for unknown indication
     Dosage: UNK
     Route: 065

REACTIONS (49)
  - Nephrotic syndrome [Recovered/Resolved]
  - Dry mouth [Recovered/Resolved]
  - Glomerulonephritis minimal lesion [Unknown]
  - Face oedema [Unknown]
  - Oedema peripheral [Unknown]
  - Proteinuria [Recovered/Resolved]
  - Hypoalbuminaemia [Recovered/Resolved]
  - Embolism venous [Recovered/Resolved]
  - Blood lactate dehydrogenase increased [Recovered/Resolved]
  - Meningioma [Recovered/Resolved]
  - Diplopia [Recovered/Resolved]
  - Adenomatous polyposis coli [Unknown]
  - Withdrawal syndrome [Unknown]
  - Coombs direct test positive [Recovered/Resolved]
  - Haptoglobin decreased [Recovered/Resolved]
  - Urine analysis abnormal [Recovered/Resolved]
  - Alanine aminotransferase increased [Unknown]
  - Eye pain [Recovered/Resolved]
  - Blood creatinine increased [Recovered/Resolved]
  - Deep vein thrombosis [Unknown]
  - Lichenoid keratosis [Recovered/Resolved]
  - Skin hypertrophy [Recovered/Resolved]
  - Poikiloderma [Recovered/Resolved]
  - Blood alkaline phosphatase increased [Recovered/Resolved]
  - Blood bilirubin increased [Recovered/Resolved]
  - Blood bilirubin unconjugated increased [Recovered/Resolved]
  - 5^nucleotidase increased [Recovered/Resolved]
  - Dry eye [Recovered/Resolved]
  - Acute graft versus host disease in skin [Recovered/Resolved]
  - Chronic graft versus host disease [Recovered/Resolved]
  - Blood urea increased [Recovered/Resolved]
  - Renal tubular necrosis [Recovered/Resolved]
  - Acute kidney injury [Recovered/Resolved]
  - Venous thrombosis [Recovered/Resolved]
  - Hepatic enzyme increased [Unknown]
  - Acute graft versus host disease [Recovered/Resolved]
  - Gamma-glutamyltransferase increased [Recovered/Resolved]
  - Generalised oedema [Recovered/Resolved]
  - Rash maculo-papular [Recovered/Resolved]
  - Cytomegalovirus infection [Recovered/Resolved]
  - Aspartate aminotransferase increased [Recovered/Resolved]
  - Anti-platelet antibody positive [Recovered/Resolved]
  - Autoimmune disorder [Recovering/Resolving]
  - Thrombocytopenia [Recovered/Resolved]
  - Reticulocytosis [Recovered/Resolved]
  - Anaemia [Recovered/Resolved]
  - Thrombosis [Unknown]
  - Cholestasis [Recovering/Resolving]
  - Hypercholesterolaemia [Recovered/Resolved]
